FAERS Safety Report 5417084-4 (Version None)
Quarter: 2007Q3

REPORT INFORMATION
  Report Type: 
  Country: None (occurrence: None)
  Receive Date: 20070718
  Receipt Date: 20060717
  Transmission Date: 20080115
  Serious: Yes (Other)
  Sender: FDA-Public Use
  Company Number: 2006052312

PATIENT

DRUGS (4)
  1. CELEBREX [Suspect]
     Indication: PROCEDURAL PAIN
     Dosage: 400 MG (200 MG,2 IN 1 D)
  2. OXYCODONE HCL [Concomitant]
  3. HYDROCODONE BITARTRATE [Concomitant]
  4. CEFDITOREN [Concomitant]

REACTIONS (1)
  - HEPATITIS [None]
